FAERS Safety Report 9946996 (Version 1)
Quarter: 2014Q1

REPORT INFORMATION
  Report Type: Report from Study
  Country: US (occurrence: US)
  Receive Date: 20140303
  Receipt Date: 20140303
  Transmission Date: 20141002
  Serious: No
  Sender: FDA-Public Use
  Company Number: US-ABBVIE-13P-163-1063899-00

PATIENT
  Age: 51 Year
  Sex: Male

DRUGS (23)
  1. HUMIRA [Suspect]
     Indication: CROHN^S DISEASE
     Dates: start: 20130206, end: 20130206
  2. HUMIRA [Suspect]
     Dates: start: 20130220, end: 20130220
  3. HUMIRA [Suspect]
     Dates: start: 20130306
  4. SPIRIVA [Concomitant]
     Indication: CHRONIC OBSTRUCTIVE PULMONARY DISEASE
  5. SPIRIVA [Concomitant]
     Indication: ASTHMA
  6. SYMBICORT [Concomitant]
     Indication: CHRONIC OBSTRUCTIVE PULMONARY DISEASE
  7. SYMBICORT [Concomitant]
     Indication: ASTHMA
  8. VENTOLIN [Concomitant]
     Indication: CHRONIC OBSTRUCTIVE PULMONARY DISEASE
  9. VENTOLIN [Concomitant]
     Indication: ASTHMA
  10. ALBUTEROL [Concomitant]
     Indication: CHRONIC OBSTRUCTIVE PULMONARY DISEASE
     Dosage: NEBULIZER
  11. ALBUTEROL [Concomitant]
     Indication: ASTHMA
  12. OXYCODONE [Concomitant]
     Indication: PAIN
  13. DIAZEPAM [Concomitant]
     Indication: MUSCLE SPASMS
  14. FLEXERIL [Concomitant]
     Indication: MUSCLE SPASMS
  15. IMURAN [Concomitant]
     Indication: GASTRIC DISORDER
  16. CALCIUM [Concomitant]
     Indication: MINERAL SUPPLEMENTATION
  17. B12 [Concomitant]
     Indication: PRODUCT USED FOR UNKNOWN INDICATION
     Dosage: EVERY MONTH
  18. B12 VITAMINS [Concomitant]
     Indication: PRODUCT USED FOR UNKNOWN INDICATION
     Dosage: DAILY
  19. VITAMIN C [Concomitant]
     Indication: PRODUCT USED FOR UNKNOWN INDICATION
  20. LYRICA [Concomitant]
     Indication: PRODUCT USED FOR UNKNOWN INDICATION
  21. CYMBALTA [Concomitant]
     Indication: PRODUCT USED FOR UNKNOWN INDICATION
  22. ZOLOFT [Concomitant]
     Indication: PRODUCT USED FOR UNKNOWN INDICATION
  23. TYLENOL [Concomitant]
     Indication: PAIN

REACTIONS (1)
  - Blood iron decreased [Not Recovered/Not Resolved]
